FAERS Safety Report 9731218 (Version 5)
Quarter: 2014Q3

REPORT INFORMATION
  Report Type: Spontaneous
  Country: US (occurrence: US)
  Receive Date: 20131203
  Receipt Date: 20140728
  Transmission Date: 20150326
  Serious: Yes (Hospitalization, Other)
  Sender: FDA-Public Use
  Company Number: US-BAYER-2013-145012

PATIENT
  Age: 26 Year
  Sex: Female
  Weight: 68 kg

DRUGS (1)
  1. MIRENA [Suspect]
     Active Substance: LEVONORGESTREL
     Indication: CONTRACEPTION
     Dosage: 20 MCG/24HR, CONT
     Route: 015
     Dates: start: 20100216, end: 20101213

REACTIONS (11)
  - Post procedural discomfort [None]
  - Feeling cold [None]
  - Faecal incontinence [None]
  - Hot flush [None]
  - Anorectal disorder [None]
  - Abdominal pain [None]
  - Uterine perforation [None]
  - Vomiting [None]
  - Colitis [None]
  - Malaise [None]
  - Medical device pain [None]

NARRATIVE: CASE EVENT DATE: 20100216
